FAERS Safety Report 10553918 (Version 2)
Quarter: 2015Q1

REPORT INFORMATION
  Report Type: Spontaneous
  Country: US (occurrence: None)
  Receive Date: 20141028
  Receipt Date: 20150309
  Transmission Date: 20150720
  Serious: Yes (Other)
  Sender: FDA-Public Use
  Company Number: 2014VER00267

PATIENT
  Age: 17 Year
  Sex: Male
  Weight: 58 kg

DRUGS (2)
  1. MYORISAN [Suspect]
     Active Substance: ISOTRETINOIN
     Indication: ACNE
     Route: 048
     Dates: start: 20140716, end: 20141007
  2. ZENATANE [Concomitant]
     Active Substance: ISOTRETINOIN
     Route: 048
     Dates: start: 20140618, end: 20140716

REACTIONS (8)
  - Red cell distribution width decreased [None]
  - Decreased appetite [None]
  - Depressed mood [None]
  - Nausea [None]
  - Disturbance in attention [None]
  - Blood triglycerides increased [None]
  - Dizziness [None]
  - Abdominal discomfort [None]

NARRATIVE: CASE EVENT DATE: 20140618
